FAERS Safety Report 8861539 (Version 1)
Quarter: 2012Q4

REPORT INFORMATION
  Report Type: 
  Country: US (occurrence: US)
  Receive Date: 20121025
  Receipt Date: 20121025
  Transmission Date: 20130627
  Serious: Yes (Hospitalization)
  Sender: FDA-Public Use
  Company Number: US-AMGEN-USASP2012016269

PATIENT
  Age: 10 Year
  Sex: Male
  Weight: 33.56 kg

DRUGS (5)
  1. ENBREL [Suspect]
     Indication: PRODUCT USED FOR UNKNOWN INDICATION
     Dosage: 25 mg, qwk
     Route: 058
  2. MULTIVITAMIN                       /00097801/ [Concomitant]
     Dosage: UNK
  3. ADVIL /00109201/ [Concomitant]
  4. TYLENOL CHILDRENS [Concomitant]
     Dosage: UNK
  5. SINUS                              /00446801/ [Concomitant]
     Dosage: UNK

REACTIONS (4)
  - Gastrointestinal viral infection [Recovered/Resolved]
  - Iritis [Unknown]
  - Injection site pruritus [Not Recovered/Not Resolved]
  - Urticaria [Not Recovered/Not Resolved]
